FAERS Safety Report 7610769-0 (Version None)
Quarter: 2011Q3

REPORT INFORMATION
  Report Type: 
  Country: None (occurrence: None)
  Receive Date: 20110715
  Receipt Date: 20110708
  Transmission Date: 20111222
  Serious: Yes (Hospitalization)
  Sender: FDA-Public Use
  Company Number: DK-PFIZER INC-2011153668

PATIENT
  Age: 50 Year
  Sex: Male
  Weight: 68 kg

DRUGS (1)
  1. SUNITINIB MALATE [Suspect]
     Indication: METASTATIC RENAL CELL CARCINOMA
     Dosage: 50 MG, UNK
     Dates: start: 20081031, end: 20090406

REACTIONS (2)
  - ANAEMIA [None]
  - URINARY RETENTION [None]
